FAERS Safety Report 13316214 (Version 1)
Quarter: 2017Q1

REPORT INFORMATION
  Report Type: Spontaneous
  Country: AU (occurrence: AU)
  Receive Date: 20170310
  Receipt Date: 20170310
  Transmission Date: 20170428
  Serious: Yes (Death, Other)
  Sender: FDA-Public Use
  Company Number: AU-AMGEN-AUSSP2017036424

PATIENT
  Age: 69 Year

DRUGS (1)
  1. BLINCYTO [Suspect]
     Active Substance: BLINATUMOMAB
     Indication: ACUTE LYMPHOCYTIC LEUKAEMIA
     Dosage: 9 MUG, CYCLICAL
     Route: 065
     Dates: start: 20161019, end: 20170211

REACTIONS (3)
  - Acute lymphocytic leukaemia recurrent [Fatal]
  - Leukaemia cutis [Fatal]
  - Central nervous system leukaemia [Fatal]
